FAERS Safety Report 11587484 (Version 2)
Quarter: 2015Q4

REPORT INFORMATION
  Report Type: Spontaneous
  Country: US (occurrence: None)
  Receive Date: 20151001
  Receipt Date: 20151007
  Transmission Date: 20160304
  Serious: No
  Sender: FDA-Public Use
  Company Number: US-MDT-ADR-2015-01879

PATIENT
  Age: 30 Year
  Sex: Male

DRUGS (1)
  1. BACLOFEN INTRATHECAL 2000MCG/ML [Suspect]
     Active Substance: BACLOFEN
     Indication: MUSCLE SPASTICITY
     Dosage: 1598.7 MCG/DAY

REACTIONS (3)
  - Muscle tightness [None]
  - Dystonia [None]
  - Muscle spasticity [None]
